FAERS Safety Report 16769368 (Version 5)
Quarter: 2019Q4

REPORT INFORMATION
  Report Type: Spontaneous
  Country: US (occurrence: US)
  Receive Date: 20190903
  Receipt Date: 20191017
  Transmission Date: 20200122
  Serious: Yes (Death)
  Sender: FDA-Public Use
  Company Number: US-ACTELION-A-US2019-194315

PATIENT
  Age: 74 Year
  Sex: Female
  Weight: 50.79 kg

DRUGS (6)
  1. UPTRAVI [Suspect]
     Active Substance: SELEXIPAG
     Dosage: 800 MCG, BID
     Route: 048
     Dates: start: 20190828
  2. SILDENAFIL CITRATE. [Concomitant]
     Active Substance: SILDENAFIL CITRATE
  3. UPTRAVI [Suspect]
     Active Substance: SELEXIPAG
     Indication: PULMONARY ARTERIAL HYPERTENSION
     Dosage: 400 MCG, BID
     Route: 048
     Dates: start: 20190807
  4. UPTRAVI [Suspect]
     Active Substance: SELEXIPAG
     Dosage: 200 MCG, BID
     Route: 048
  5. UPTRAVI [Suspect]
     Active Substance: SELEXIPAG
     Dosage: 1000 MCG, BID
     Route: 048
  6. OPSUMIT [Concomitant]
     Active Substance: MACITENTAN

REACTIONS (11)
  - Hypotension [Unknown]
  - Malaise [Not Recovered/Not Resolved]
  - Headache [Unknown]
  - Pain [Unknown]
  - Fatigue [Recovering/Resolving]
  - Insomnia [Unknown]
  - Feeling jittery [Unknown]
  - Death [Fatal]
  - Nervousness [Recovering/Resolving]
  - Myalgia [Recovering/Resolving]
  - Pain in jaw [Unknown]

NARRATIVE: CASE EVENT DATE: 20190807
